FAERS Safety Report 9064723 (Version 1)
Quarter: 2013Q1

REPORT INFORMATION
  Report Type: Spontaneous
  Country: US (occurrence: US)
  Receive Date: 20130213
  Receipt Date: 20130213
  Transmission Date: 20140127
  Serious: Yes (Hospitalization)
  Sender: FDA-Public Use
  Company Number: US-B.I. PHARMACEUTICALS,INC./RIDGEFIELD-2013-BI-03564BP

PATIENT
  Age: 66 None
  Sex: Female
  Weight: 81 kg

DRUGS (2)
  1. COMBIVENT [Suspect]
     Indication: PNEUMONIA
     Route: 055
     Dates: start: 2000, end: 2000
  2. COMBIVENT [Suspect]
     Route: 055
     Dates: start: 2000

REACTIONS (5)
  - Myocardial infarction [Not Recovered/Not Resolved]
  - Pneumonia [Unknown]
  - Memory impairment [Not Recovered/Not Resolved]
  - Weight increased [Not Recovered/Not Resolved]
  - Expired drug administered [Not Recovered/Not Resolved]
